FAERS Safety Report 16516433 (Version 1)
Quarter: 2019Q3

REPORT INFORMATION
  Report Type: Spontaneous
  Country: US (occurrence: US)
  Receive Date: 20190522
  Receipt Date: 20190522
  Transmission Date: 20191004
  Serious: No
  Sender: FDA-Public Use
  Company Number: None

PATIENT
  Age: 66 Year
  Sex: Female
  Weight: 89.81 kg

DRUGS (2)
  1. OTREXUP [Suspect]
     Active Substance: METHOTREXATE
     Indication: RHEUMATOID ARTHRITIS
     Route: 058
     Dates: start: 2019
  2. OTREXUP [Suspect]
     Active Substance: METHOTREXATE
     Indication: MUSCULOSKELETAL DISORDER
     Route: 058
     Dates: start: 2019

REACTIONS (1)
  - Upper respiratory tract infection [None]
